FAERS Safety Report 5029361-X (Version None)
Quarter: 2006Q2

REPORT INFORMATION
  Report Type: 
  Country: None (occurrence: None)
  Receive Date: 20060614
  Receipt Date: 20060526
  Transmission Date: 20061013
  Serious: Yes (Hospitalization)
  Sender: FDA-Public Use
  Company Number: US200601001333

PATIENT
  Age: 10 Year
  Sex: Female

DRUGS (2)
  1. HUMATROPE [Suspect]
     Indication: TURNER'S SYNDROME
     Dates: start: 20040101
  2. HUMATROPEN (HUMATROPEN) PEN,REUSABLE [Concomitant]

REACTIONS (2)
  - ACINETOBACTER INFECTION [None]
  - INFLUENZA [None]
